FAERS Safety Report 8839548 (Version 1)
Quarter: 2012Q4

REPORT INFORMATION
  Report Type: 
  Country: ES (occurrence: ES)
  Receive Date: 20121015
  Receipt Date: 20121015
  Transmission Date: 20130627
  Serious: Yes (Other)
  Sender: FDA-Public Use
  Company Number: PHHY2012ES050150

PATIENT
  Age: 61 Year
  Sex: Male

DRUGS (1)
  1. TASIGNA [Suspect]
     Dosage: 400 mg, Q12H
     Route: 048

REACTIONS (2)
  - Cerebral artery thrombosis [Unknown]
  - Aphasia [Unknown]
